FAERS Safety Report 9774663 (Version 2)
Quarter: 2013Q4

REPORT INFORMATION
  Report Type: Spontaneous
  Country: US (occurrence: US)
  Receive Date: 20131220
  Receipt Date: 20131227
  Transmission Date: 20140711
  Serious: Yes (Death, Other)
  Sender: FDA-Public Use
  Company Number: US-JNJFOC-20131211708

PATIENT
  Age: 0 None
  Sex: Female
  Weight: 2.13 kg

DRUGS (4)
  1. PREZISTA [Suspect]
     Indication: HIV INFECTION
     Route: 064
     Dates: start: 20130312
  2. TRUVADA [Suspect]
     Indication: PRODUCT USED FOR UNKNOWN INDICATION
     Route: 064
     Dates: start: 20130312
  3. NORVIR [Suspect]
     Indication: PRODUCT USED FOR UNKNOWN INDICATION
     Route: 064
     Dates: start: 20130312
  4. RETROVIR [Suspect]
     Indication: PRODUCT USED FOR UNKNOWN INDICATION
     Route: 064
     Dates: start: 20130806, end: 20130806

REACTIONS (5)
  - Death [Fatal]
  - Premature baby [Not Recovered/Not Resolved]
  - Subgaleal haematoma [Unknown]
  - Disseminated intravascular coagulation [Unknown]
  - Foetal exposure during pregnancy [Recovered/Resolved]
